FAERS Safety Report 25838916 (Version 1)
Quarter: 2025Q3

REPORT INFORMATION
  Report Type: Spontaneous
  Country: US (occurrence: US)
  Receive Date: 20250924
  Receipt Date: 20250924
  Transmission Date: 20251020
  Serious: No
  Sender: ROCHE
  Company Number: US-ROCHE-10000392128

PATIENT
  Sex: Female

DRUGS (1)
  1. XOLAIR [Suspect]
     Active Substance: OMALIZUMAB
     Indication: Urticaria
     Route: 058
     Dates: start: 202508

REACTIONS (4)
  - Burning sensation [Recovering/Resolving]
  - Pruritus [Recovering/Resolving]
  - Dizziness [Unknown]
  - Blood pressure decreased [Unknown]
